FAERS Safety Report 7372379-2 (Version None)
Quarter: 2011Q1

REPORT INFORMATION
  Report Type: 
  Country: None (occurrence: None)
  Receive Date: 20110324
  Receipt Date: 20101022
  Transmission Date: 20110831
  Serious: Yes (Hospitalization, Other)
  Sender: FDA-Public Use
  Company Number: TR-JNJFOC-20101100002

PATIENT
  Age: 40 Year
  Sex: Female

DRUGS (7)
  1. CHLORPROMAZINE [Suspect]
     Route: 030
  2. HALOPERIDOL [Suspect]
     Route: 030
  3. VENLAFAXINE HCL [Suspect]
     Indication: DEPRESSION
     Route: 065
  4. HALOPERIDOL [Suspect]
     Indication: ILL-DEFINED DISORDER
     Route: 030
  5. PIMOZIDE [Suspect]
     Indication: ILL-DEFINED DISORDER
     Route: 065
  6. RISPERIDONE [Suspect]
     Indication: ILL-DEFINED DISORDER
     Route: 065
  7. CHLORPROMAZINE [Suspect]
     Indication: ILL-DEFINED DISORDER
     Route: 030

REACTIONS (1)
  - HEPATITIS CHOLESTATIC [None]
